FAERS Safety Report 4403433-2 (Version None)
Quarter: 2004Q3

REPORT INFORMATION
  Report Type: 
  Country: None (occurrence: None)
  Receive Date: 20040720
  Receipt Date: 20040707
  Transmission Date: 20050211
  Serious: Yes (Other)
  Sender: FDA-Public Use
  Company Number: LBID00204001388

PATIENT
  Age: 50 Year
  Sex: Female
  Weight: 62.5964 kg

DRUGS (1)
  1. LITHOBID [Suspect]
     Indication: BIPOLAR DISORDER
     Dosage: 300 MG BID PO, 300 MG TID PO
     Dates: start: 20031226, end: 20040601

REACTIONS (1)
  - HEPATITIS C [None]
